FAERS Safety Report 8976154 (Version 3)
Quarter: 2013Q1

REPORT INFORMATION
  Report Type: Spontaneous
  Country: US (occurrence: US)
  Receive Date: 20121220
  Receipt Date: 20130306
  Transmission Date: 20140127
  Serious: Yes (Hospitalization)
  Sender: FDA-Public Use
  Company Number: US-GILEAD-2012-0066624

PATIENT
  Sex: Female

DRUGS (3)
  1. LETAIRIS [Suspect]
     Indication: PULMONARY HYPERTENSION
     Dosage: 5 MG, QD
     Route: 048
     Dates: start: 20100331
  2. LETAIRIS [Suspect]
     Indication: AUTOIMMUNE DISORDER
  3. REVATIO [Concomitant]

REACTIONS (2)
  - Musculoskeletal chest pain [Unknown]
  - Dyspnoea [Unknown]
